FAERS Safety Report 18587747 (Version 1)
Quarter: 2020Q4

REPORT INFORMATION
  Report Type: Spontaneous
  Country: US (occurrence: US)
  Receive Date: 20201207
  Receipt Date: 20201207
  Transmission Date: 20210114
  Serious: No
  Sender: FDA-Public Use
  Company Number: US-NOVOPROD-742588

PATIENT
  Age: 57 Year
  Sex: Female

DRUGS (1)
  1. NOVOLIN 70/30 [Suspect]
     Active Substance: INSULIN HUMAN
     Indication: TYPE 2 DIABETES MELLITUS
     Dosage: 20 IU, BID
     Route: 058
     Dates: start: 20200712, end: 202007

REACTIONS (2)
  - Feeling jittery [Recovered/Resolved]
  - Dry mouth [Recovering/Resolving]

NARRATIVE: CASE EVENT DATE: 20200712
